FAERS Safety Report 19740653 (Version 2)
Quarter: 2021Q4

REPORT INFORMATION
  Report Type: Spontaneous
  Country: US (occurrence: US)
  Receive Date: 20210825
  Receipt Date: 20211004
  Transmission Date: 20220304
  Serious: No
  Sender: FDA-Public Use
  Company Number: US-BAUSCH-BL-2021-027849

PATIENT
  Sex: Female

DRUGS (2)
  1. PROLENSA [Suspect]
     Active Substance: BROMFENAC SODIUM
     Indication: Cataract operation
     Dosage: ONE DROP IN THE LEFT EYE ONCE DAILY AFTER CATARACT SURGERY
     Route: 047
     Dates: start: 20210804
  2. PROLENSA [Suspect]
     Active Substance: BROMFENAC SODIUM
     Indication: Postoperative care

REACTIONS (2)
  - Product dose omission in error [Unknown]
  - Product packaging quantity issue [Unknown]
